FAERS Safety Report 20335349 (Version 1)
Quarter: 2022Q1

REPORT INFORMATION
  Report Type: Spontaneous
  Country: US (occurrence: US)
  Receive Date: 20220114
  Receipt Date: 20220114
  Transmission Date: 20220424
  Serious: Yes (Other)
  Sender: FDA-Public Use
  Company Number: US-MYLANLABS-2022M1002848

PATIENT
  Age: 6 Decade
  Sex: Female

DRUGS (44)
  1. ANASTROZOLE [Suspect]
     Active Substance: ANASTROZOLE
     Indication: Hormone receptor positive HER2 negative breast cancer
     Dosage: UNK
     Route: 065
     Dates: start: 201312, end: 201405
  2. ANASTROZOLE [Suspect]
     Active Substance: ANASTROZOLE
     Indication: Malignant pleural effusion
  3. ANASTROZOLE [Suspect]
     Active Substance: ANASTROZOLE
     Indication: Metastases to liver
  4. ANASTROZOLE [Suspect]
     Active Substance: ANASTROZOLE
     Indication: Metastases to bone
  5. LETROZOLE [Suspect]
     Active Substance: LETROZOLE
     Indication: Hormone receptor positive HER2 negative breast cancer
     Dosage: UNK
     Route: 065
     Dates: start: 201405, end: 201409
  6. LETROZOLE [Suspect]
     Active Substance: LETROZOLE
     Indication: Malignant pleural effusion
  7. LETROZOLE [Suspect]
     Active Substance: LETROZOLE
     Indication: Metastases to liver
  8. LETROZOLE [Suspect]
     Active Substance: LETROZOLE
     Indication: Metastases to bone
  9. EVEROLIMUS [Suspect]
     Active Substance: EVEROLIMUS
     Indication: Hormone receptor positive HER2 negative breast cancer
     Dosage: UNK
     Route: 065
     Dates: start: 201409, end: 201412
  10. EVEROLIMUS [Suspect]
     Active Substance: EVEROLIMUS
     Indication: Malignant pleural effusion
  11. EVEROLIMUS [Suspect]
     Active Substance: EVEROLIMUS
     Indication: Metastases to liver
  12. EVEROLIMUS [Suspect]
     Active Substance: EVEROLIMUS
     Indication: Metastases to bone
  13. CARBOPLATIN [Suspect]
     Active Substance: CARBOPLATIN
     Indication: Hormone receptor positive HER2 negative breast cancer
     Dosage: UNK
     Route: 065
     Dates: start: 201504, end: 201506
  14. CARBOPLATIN [Suspect]
     Active Substance: CARBOPLATIN
     Indication: Malignant pleural effusion
  15. CARBOPLATIN [Suspect]
     Active Substance: CARBOPLATIN
     Indication: Metastases to liver
  16. CARBOPLATIN [Suspect]
     Active Substance: CARBOPLATIN
     Indication: Metastases to bone
  17. GEMCITABINE [Suspect]
     Active Substance: GEMCITABINE
     Indication: Hormone receptor positive HER2 negative breast cancer
     Dosage: UNK
     Route: 065
     Dates: start: 201504, end: 201506
  18. GEMCITABINE [Suspect]
     Active Substance: GEMCITABINE
     Indication: Malignant pleural effusion
  19. GEMCITABINE [Suspect]
     Active Substance: GEMCITABINE
     Indication: Metastases to liver
  20. GEMCITABINE [Suspect]
     Active Substance: GEMCITABINE
     Indication: Metastases to bone
  21. PACLITAXEL [Suspect]
     Active Substance: PACLITAXEL
     Indication: Hormone receptor positive HER2 negative breast cancer
     Dosage: UNK
     Route: 065
     Dates: start: 201506, end: 201511
  22. PACLITAXEL [Suspect]
     Active Substance: PACLITAXEL
     Indication: Malignant pleural effusion
  23. PACLITAXEL [Suspect]
     Active Substance: PACLITAXEL
     Indication: Metastases to liver
  24. PACLITAXEL [Suspect]
     Active Substance: PACLITAXEL
     Indication: Metastases to bone
  25. EXEMESTANE [Suspect]
     Active Substance: EXEMESTANE
     Indication: Hormone receptor positive HER2 negative breast cancer
     Dosage: UNK
     Route: 065
     Dates: start: 201409, end: 201412
  26. EXEMESTANE [Suspect]
     Active Substance: EXEMESTANE
     Indication: Malignant pleural effusion
  27. EXEMESTANE [Suspect]
     Active Substance: EXEMESTANE
     Indication: Metastases to liver
  28. EXEMESTANE [Suspect]
     Active Substance: EXEMESTANE
     Indication: Metastases to bone
  29. CAPECITABINE [Suspect]
     Active Substance: CAPECITABINE
     Indication: Hormone receptor positive HER2 negative breast cancer
     Dosage: UNK
     Route: 065
     Dates: start: 201412, end: 201504
  30. CAPECITABINE [Suspect]
     Active Substance: CAPECITABINE
     Indication: Malignant pleural effusion
  31. CAPECITABINE [Suspect]
     Active Substance: CAPECITABINE
     Indication: Metastases to liver
  32. CAPECITABINE [Suspect]
     Active Substance: CAPECITABINE
     Indication: Metastases to bone
  33. ERIBULIN [Suspect]
     Active Substance: ERIBULIN
     Indication: Hormone receptor positive HER2 negative breast cancer
     Dosage: UNK
     Route: 065
     Dates: start: 201511, end: 201702
  34. ERIBULIN [Suspect]
     Active Substance: ERIBULIN
     Indication: Malignant pleural effusion
  35. ERIBULIN [Suspect]
     Active Substance: ERIBULIN
     Indication: Metastases to liver
  36. ERIBULIN [Suspect]
     Active Substance: ERIBULIN
     Indication: Metastases to bone
  37. PALBOCICLIB [Suspect]
     Active Substance: PALBOCICLIB
     Indication: Hormone receptor positive HER2 negative breast cancer
     Dosage: UNK
     Route: 065
     Dates: start: 201702, end: 201802
  38. PALBOCICLIB [Suspect]
     Active Substance: PALBOCICLIB
     Indication: Malignant pleural effusion
  39. PALBOCICLIB [Suspect]
     Active Substance: PALBOCICLIB
     Indication: Metastases to liver
  40. PALBOCICLIB [Suspect]
     Active Substance: PALBOCICLIB
     Indication: Metastases to bone
  41. FULVESTRANT [Suspect]
     Active Substance: FULVESTRANT
     Indication: Hormone receptor positive HER2 negative breast cancer
     Dosage: GIVEN WITH PALBOCICLIB
     Route: 065
     Dates: start: 201702, end: 201802
  42. FULVESTRANT [Suspect]
     Active Substance: FULVESTRANT
     Indication: Malignant pleural effusion
     Dosage: GIVEN WITH IPATASERTIB
     Route: 065
     Dates: start: 201803, end: 201905
  43. FULVESTRANT [Suspect]
     Active Substance: FULVESTRANT
     Indication: Metastases to liver
  44. FULVESTRANT [Suspect]
     Active Substance: FULVESTRANT
     Indication: Metastases to bone

REACTIONS (1)
  - Drug ineffective [Unknown]
